FAERS Safety Report 6978374-7 (Version None)
Quarter: 2010Q3

REPORT INFORMATION
  Report Type: 
  Country: None (occurrence: None)
  Receive Date: 20100913
  Receipt Date: 20100902
  Transmission Date: 20110219
  Serious: Yes (Life-Threatening)
  Sender: FDA-Public Use
  Company Number: PL-PFIZER INC-2010111548

PATIENT
  Age: 74 Year
  Sex: Male

DRUGS (1)
  1. SULPERAZON [Suspect]
     Indication: CHRONIC OBSTRUCTIVE PULMONARY DISEASE
     Dosage: UNK
     Route: 042
     Dates: start: 20100530, end: 20100530

REACTIONS (2)
  - APNOEA [None]
  - DYSPNOEA [None]
